FAERS Safety Report 9387080 (Version 1)
Quarter: 2013Q3

REPORT INFORMATION
  Report Type: Spontaneous
  Country: IT (occurrence: IT)
  Receive Date: 20130708
  Receipt Date: 20130708
  Transmission Date: 20140515
  Serious: Yes (Other)
  Sender: FDA-Public Use
  Company Number: PHHY2013IT070494

PATIENT
  Sex: Female

DRUGS (2)
  1. AMOXICILLIN [Suspect]
     Indication: TOOTHACHE
     Dosage: 1 G, DAILY
     Route: 048
     Dates: start: 20130529, end: 20130529
  2. NIMESULIDE [Concomitant]
     Dosage: UNK UKN, UNK
     Dates: start: 20130527, end: 20130528

REACTIONS (6)
  - Abdominal pain [Recovering/Resolving]
  - Asthenia [Recovering/Resolving]
  - Diarrhoea [Recovering/Resolving]
  - Erythema [Recovering/Resolving]
  - Pruritus [Recovering/Resolving]
  - Vomiting [Recovering/Resolving]
